FAERS Safety Report 26059388 (Version 1)
Quarter: 2025Q4

REPORT INFORMATION
  Report Type: Report from Study
  Country: US (occurrence: US)
  Receive Date: 20251118
  Receipt Date: 20251118
  Transmission Date: 20260117
  Serious: Yes (Other)
  Sender: BIOCODEX
  Company Number: US-BIOCODEX2-2025001793

PATIENT
  Sex: Male
  Weight: 50.5 kg

DRUGS (44)
  1. DIACOMIT [Suspect]
     Active Substance: STIRIPENTOL
     Indication: Severe myoclonic epilepsy of infancy
     Dosage: TAKE 500 MG VIA G-TUBE TWICE DAILY
     Dates: start: 20220729
  2. DIACOMIT [Suspect]
     Active Substance: STIRIPENTOL
  3. CLOBAZAM [Concomitant]
     Active Substance: CLOBAZAM
     Indication: Severe myoclonic epilepsy of infancy
  4. CLOBAZAM [Concomitant]
     Active Substance: CLOBAZAM
  5. STEPRO [OTC] [Concomitant]
     Indication: Product used for unknown indication
  6. STEPRO [OTC] [Concomitant]
  7. CULTURELLE [OTC] [Concomitant]
     Indication: Product used for unknown indication
  8. CULTURELLE [OTC] [Concomitant]
  9. DEPAKENE [DSC] [Concomitant]
     Indication: Product used for unknown indication
  10. DEPAKENE [DSC] [Concomitant]
  11. DIAZEPAM [Concomitant]
     Active Substance: DIAZEPAM
     Indication: Product used for unknown indication
  12. DIAZEPAM [Concomitant]
     Active Substance: DIAZEPAM
  13. EPIDIOLEX [Concomitant]
     Active Substance: CANNABIDIOL
     Indication: Product used for unknown indication
  14. EPIDIOLEX [Concomitant]
     Active Substance: CANNABIDIOL
  15. FLONASE SENSIMIST [OTC] [Concomitant]
     Indication: Product used for unknown indication
  16. FLONASE SENSIMIST [OTC] [Concomitant]
  17. FLUTICASONE PROPIONATE\SALMETEROL XINAFOATE [Concomitant]
     Active Substance: FLUTICASONE PROPIONATE\SALMETEROL XINAFOATE
     Indication: Product used for unknown indication
  18. FLUTICASONE PROPIONATE\SALMETEROL XINAFOATE [Concomitant]
     Active Substance: FLUTICASONE PROPIONATE\SALMETEROL XINAFOATE
  19. GABAPENTIN [Concomitant]
     Active Substance: GABAPENTIN
     Indication: Product used for unknown indication
  20. GABAPENTIN [Concomitant]
     Active Substance: GABAPENTIN
  21. glycopyrrolate (systemic) [Concomitant]
     Indication: Product used for unknown indication
  22. glycopyrrolate (systemic) [Concomitant]
  23. KEPPRA [Concomitant]
     Active Substance: LEVETIRACETAM
     Indication: Product used for unknown indication
  24. KEPPRA [Concomitant]
     Active Substance: LEVETIRACETAM
  25. MIRALAX [OTC] [Concomitant]
     Indication: Product used for unknown indication
  26. MIRALAX [OTC] [Concomitant]
  27. MONTELUKAST [Concomitant]
     Active Substance: MONTELUKAST
     Indication: Product used for unknown indication
  28. MONTELUKAST [Concomitant]
     Active Substance: MONTELUKAST
  29. OMEPRAZOLE [Concomitant]
     Active Substance: OMEPRAZOLE
     Indication: Product used for unknown indication
  30. OMEPRAZOLE [Concomitant]
     Active Substance: OMEPRAZOLE
  31. SENNA [Concomitant]
     Active Substance: SENNOSIDES
     Indication: Product used for unknown indication
  32. SENNA [Concomitant]
     Active Substance: SENNOSIDES
  33. SODIUM CHLORIDE [Concomitant]
     Active Substance: SODIUM CHLORIDE
     Indication: Product used for unknown indication
  34. SODIUM CHLORIDE [Concomitant]
     Active Substance: SODIUM CHLORIDE
  35. SYMBICORT [Concomitant]
     Active Substance: BUDESONIDE\FORMOTEROL FUMARATE DIHYDRATE
     Indication: Product used for unknown indication
  36. SYMBICORT [Concomitant]
     Active Substance: BUDESONIDE\FORMOTEROL FUMARATE DIHYDRATE
  37. VERSED [Concomitant]
     Active Substance: MIDAZOLAM HYDROCHLORIDE
     Indication: Product used for unknown indication
  38. VERSED [Concomitant]
     Active Substance: MIDAZOLAM HYDROCHLORIDE
  39. ZYRTEC [OTC] [Concomitant]
     Indication: Product used for unknown indication
  40. ZYRTEC [OTC] [Concomitant]
  41. LOPERAMIDE [Concomitant]
     Active Substance: LOPERAMIDE
     Indication: Product used for unknown indication
  42. LOPERAMIDE [Concomitant]
     Active Substance: LOPERAMIDE
  43. VALPROIC ACID [Concomitant]
     Active Substance: VALPROIC ACID
     Indication: Product used for unknown indication
  44. VALPROIC ACID [Concomitant]
     Active Substance: VALPROIC ACID

REACTIONS (3)
  - Pneumonia [Unknown]
  - Off label use [Unknown]
  - Wrong technique in product usage process [Unknown]
